FAERS Safety Report 9678971 (Version 5)
Quarter: 2014Q1

REPORT INFORMATION
  Report Type: Report from Study
  Country: DE (occurrence: DE)
  Receive Date: 20131108
  Receipt Date: 20140212
  Transmission Date: 20141002
  Serious: Yes (Hospitalization)
  Sender: FDA-Public Use
  Company Number: DE-INCYTE CORPORATION-2013IN002619

PATIENT
  Sex: Male
  Weight: 61.9 kg

DRUGS (9)
  1. INCB018424 [Suspect]
     Indication: MYELOFIBROSIS
     Dosage: 5 MG, ( 6 DF PER DAY)
     Route: 048
     Dates: start: 20130720, end: 20130822
  2. INCB018424 [Suspect]
     Dosage: 5 MG, BID (2 DF PER DAY)
     Route: 048
     Dates: start: 20130823, end: 20130827
  3. INCB018424 [Suspect]
     Dosage: 5 MG, BID  (2 DF PER DAY)
     Route: 048
     Dates: start: 20130904, end: 20130910
  4. INCB018424 [Suspect]
     Dosage: 5 MG, (4 DF DAILY)
     Route: 048
     Dates: start: 20130911, end: 20131029
  5. INCB018424 [Suspect]
     Dosage: 5 MG, (4 DF DAILY)
     Route: 048
     Dates: start: 20131031, end: 20131103
  6. INCB018424 [Suspect]
     Dosage: 5 MG (4 DF PER DAY)
     Route: 048
     Dates: start: 20131107, end: 20131118
  7. INCB018424 [Suspect]
     Dosage: 5 MG, (4 DF PER DAY)
     Route: 048
     Dates: start: 20131130, end: 20131218
  8. INCB018424 [Suspect]
     Dosage: 30 MG PER DAY
     Route: 048
     Dates: start: 20131219
  9. DUODART [Concomitant]
     Dosage: UNK

REACTIONS (4)
  - Paraesthesia [Not Recovered/Not Resolved]
  - Hypoaesthesia [Recovered/Resolved]
  - Pruritus [Unknown]
  - Thrombocytopenia [Unknown]
